FAERS Safety Report 6008117-5 (Version None)
Quarter: 2008Q4

REPORT INFORMATION
  Report Type: 
  Country: None (occurrence: None)
  Receive Date: 20081217
  Receipt Date: 20080825
  Transmission Date: 20090506
  Serious: No
  Sender: FDA-Public Use
  Company Number: US-ASTRAZENECA-2008UW17434

PATIENT
  Age: 65 Year
  Sex: Female
  Weight: 54.9 kg

DRUGS (6)
  1. CRESTOR [Suspect]
     Indication: BLOOD CHOLESTEROL INCREASED
     Dosage: 10 MG
     Route: 048
     Dates: start: 20070701, end: 20080814
  2. COZAAR [Concomitant]
  3. MIRALAX [Concomitant]
  4. LORAZEPAM [Concomitant]
  5. NORTRIPTYLINE HCL [Concomitant]
  6. COUMADIN [Concomitant]

REACTIONS (4)
  - HYPOAESTHESIA [None]
  - MUSCLE SPASMS [None]
  - PAIN IN EXTREMITY [None]
  - PARAESTHESIA [None]
